FAERS Safety Report 9112537 (Version 1)
Quarter: 2013Q1

REPORT INFORMATION
  Report Type: Report from Study
  Country: US (occurrence: US)
  Receive Date: 20130211
  Receipt Date: 20130211
  Transmission Date: 20140127
  Serious: Yes (Hospitalization)
  Sender: FDA-Public Use
  Company Number: US-ROCHE-1188589

PATIENT
  Age: 58 Year
  Sex: Female
  Weight: 63.9 kg

DRUGS (3)
  1. BEVACIZUMAB [Suspect]
     Indication: OVARIAN EPITHELIAL CANCER
     Dosage: LAST ADMINISTERED DATE: 05/DEC/2012
     Route: 042
     Dates: start: 20111220
  2. PACLITAXEL [Suspect]
     Indication: OVARIAN EPITHELIAL CANCER
     Route: 042
     Dates: start: 20111220
  3. CARBOPLATIN [Suspect]
     Indication: OVARIAN EPITHELIAL CANCER
     Dosage: AUC 6
     Route: 042
     Dates: start: 20111220

REACTIONS (1)
  - Soft tissue necrosis [Not Recovered/Not Resolved]
